FAERS Safety Report 8605138-0 (Version None)
Quarter: 2012Q3

REPORT INFORMATION
  Report Type: 
  Country: None (occurrence: None)
  Receive Date: 20120820
  Receipt Date: 20120809
  Transmission Date: 20120928
  Serious: Yes (Hospitalization, Other)
  Sender: FDA-Public Use
  Company Number: US-BAYER-2012-082743

PATIENT
  Age: 37 Year
  Sex: Female

DRUGS (8)
  1. BUTOCONAZOLE NITRATE [Concomitant]
  2. ZYRTEC [Concomitant]
     Dosage: 10 MG, UNK
  3. LUNESTA [Concomitant]
     Dosage: 2 MG TABLETS; 30 DISPENSED
  4. METRONIDAZOLE [Concomitant]
     Dosage: 500 MG TABLETS; 21 DISPENSED
  5. YASMIN [Suspect]
  6. KETEK [Concomitant]
     Dosage: 400 MG TABLETS, 20 DISPENSED
  7. FLUCONAZOLE [Concomitant]
     Dosage: 150 MG, TABLET, 1 DISPENSED
  8. OXYCODONE HCL AND ACETAMINOPHEN [Concomitant]
     Dosage: 5-325 MG TABLETS; 40 DISPENSED

REACTIONS (3)
  - PULMONARY EMBOLISM [None]
  - DEEP VEIN THROMBOSIS [None]
  - THROMBOPHLEBITIS SUPERFICIAL [None]
